FAERS Safety Report 9113294 (Version 1)
Quarter: 2013Q1

REPORT INFORMATION
  Report Type: Spontaneous
  Country: US (occurrence: US)
  Receive Date: 20130211
  Receipt Date: 20130211
  Transmission Date: 20140127
  Serious: No
  Sender: FDA-Public Use
  Company Number: US-JNJFOC-20130117593

PATIENT
  Age: 28 Year
  Sex: Male

DRUGS (2)
  1. SANDOZ FENTANYL TRANSDERMAL SYSTEM [Suspect]
     Indication: ROAD TRAFFIC ACCIDENT
     Route: 062
     Dates: start: 201212
  2. HYDROCODONE [Concomitant]
     Indication: BREAKTHROUGH PAIN
     Dosage: 12/325 MG TABLETS
     Route: 048
     Dates: start: 201211

REACTIONS (3)
  - Drug ineffective [Not Recovered/Not Resolved]
  - Poor quality drug administered [Recovered/Resolved]
  - Product quality issue [Recovered/Resolved]
